FAERS Safety Report 8259392-8 (Version None)
Quarter: 2012Q2

REPORT INFORMATION
  Report Type: 
  Country: None (occurrence: None)
  Receive Date: 20120404
  Receipt Date: 20120326
  Transmission Date: 20120825
  Serious: Yes (Other)
  Sender: FDA-Public Use
  Company Number: JP-JNJFOC-20120309231

PATIENT
  Sex: Female

DRUGS (16)
  1. ZYRTEC [Suspect]
     Indication: RHINITIS ALLERGIC
     Route: 048
     Dates: start: 20120222, end: 20120222
  2. CLARITHROMYCIN [Suspect]
     Indication: INFECTION
     Route: 048
     Dates: start: 20120222, end: 20120222
  3. CLARITHROMYCIN [Suspect]
     Route: 048
     Dates: start: 20120222, end: 20120222
  4. PERIACTIN [Suspect]
     Route: 048
     Dates: start: 20120304, end: 20120304
  5. LEBENIN [Suspect]
     Route: 048
     Dates: start: 20120222, end: 20120222
  6. LEBENIN [Suspect]
     Route: 048
     Dates: start: 20120304, end: 20120304
  7. MUCODYNE-DS [Suspect]
     Route: 048
     Dates: start: 20120222, end: 20120222
  8. LEBENIN [Suspect]
     Indication: RHINITIS ALLERGIC
     Route: 048
     Dates: start: 20120222, end: 20120222
  9. MUCODYNE-DS [Suspect]
     Indication: RHINITIS ALLERGIC
     Route: 048
     Dates: start: 20120304, end: 20120304
  10. CLARITHROMYCIN [Suspect]
     Indication: RHINITIS ALLERGIC
     Route: 048
     Dates: start: 20120304, end: 20120304
  11. ZYRTEC [Suspect]
     Route: 048
     Dates: start: 20120304, end: 20120304
  12. PERIACTIN [Suspect]
     Indication: RHINITIS ALLERGIC
     Route: 048
     Dates: start: 20120222, end: 20120222
  13. MUCODYNE-DS [Suspect]
     Route: 048
     Dates: start: 20120304, end: 20120304
  14. MUCODYNE-DS [Suspect]
     Indication: PRODUCTIVE COUGH
     Route: 048
     Dates: start: 20120222, end: 20120222
  15. CLARITHROMYCIN [Suspect]
     Route: 048
     Dates: start: 20120304, end: 20120304
  16. LEBENIN [Suspect]
     Indication: ANTIDIARRHOEAL SUPPORTIVE CARE
     Route: 048
     Dates: start: 20120304, end: 20120304

REACTIONS (3)
  - VOMITING [None]
  - HALLUCINATION [None]
  - COUGH [None]
